FAERS Safety Report 12291137 (Version 1)
Quarter: 2016Q2

REPORT INFORMATION
  Report Type: Spontaneous
  Country: FR (occurrence: FR)
  Receive Date: 20160421
  Receipt Date: 20160421
  Transmission Date: 20160815
  Serious: Yes (Hospitalization)
  Sender: FDA-Public Use
  Company Number: FR-SA-2016SA078039

PATIENT
  Age: 35 Year
  Sex: Male

DRUGS (7)
  1. DEPAMIDE [Suspect]
     Active Substance: VALPROMIDE
     Route: 048
     Dates: start: 20160216, end: 20160216
  2. CLOPIXOL [Concomitant]
     Active Substance: ZUCLOPENTHIXOL ACETATE
     Route: 065
  3. TERCIAN [Suspect]
     Active Substance: CYAMEMAZINE
     Route: 048
     Dates: start: 20160216, end: 20160216
  4. STILNOX [Suspect]
     Active Substance: ZOLPIDEM TARTRATE
     Route: 065
  5. NORSET [Concomitant]
     Active Substance: MIRTAZAPINE
     Route: 065
  6. DEPAKOTE [Suspect]
     Active Substance: DIVALPROEX SODIUM
     Route: 065
  7. TRANXENE T-TAB [Suspect]
     Active Substance: CLORAZEPATE DIPOTASSIUM
     Route: 048

REACTIONS (3)
  - Hyperammonaemia [Unknown]
  - Hypotension [Recovered/Resolved]
  - Somnolence [Recovered/Resolved]

NARRATIVE: CASE EVENT DATE: 20160216
